FAERS Safety Report 14489446 (Version 1)
Quarter: 2018Q1

REPORT INFORMATION
  Report Type: Spontaneous
  Country: US (occurrence: US)
  Receive Date: 20180205
  Receipt Date: 20180205
  Transmission Date: 20180509
  Serious: No
  Sender: FDA-Public Use
  Company Number: US-AMGEN-USASP2017034346

PATIENT
  Age: 61 Year
  Sex: Female

DRUGS (3)
  1. CARBOPLATIN. [Concomitant]
     Active Substance: CARBOPLATIN
     Indication: RENAL CANCER
     Dosage: UNK, ON DAY 1 OF A 21 DAY CYCLE
     Dates: start: 2017
  2. PACLITAXEL. [Concomitant]
     Active Substance: PACLITAXEL
     Indication: RENAL CANCER
     Dosage: UNK, ON DAY 1 OF A 21 DAY CYCLE
     Dates: start: 2017
  3. NEULASTA [Suspect]
     Active Substance: PEGFILGRASTIM
     Indication: PRODUCT USED FOR UNKNOWN INDICATION
     Dosage: UNK
     Route: 065
     Dates: start: 20170120

REACTIONS (2)
  - Wrong technique in product usage process [Unknown]
  - Inappropriate schedule of drug administration [Unknown]

NARRATIVE: CASE EVENT DATE: 20170302
